FAERS Safety Report 21984138 (Version 1)
Quarter: 2023Q1

REPORT INFORMATION
  Report Type: Spontaneous
  Country: US (occurrence: US)
  Receive Date: 20230213
  Receipt Date: 20230213
  Transmission Date: 20230418
  Serious: Yes (Other)
  Sender: FDA-Public Use
  Company Number: US-AUROBINDO-AUR-APL-2023-006233

PATIENT
  Age: 73 Year
  Sex: Female
  Weight: 192 kg

DRUGS (1)
  1. COLD-EEZE [Suspect]
     Active Substance: ZINC GLUCONATE
     Indication: Product used for unknown indication
     Dosage: UNK
     Route: 065

REACTIONS (4)
  - Renal failure [Unknown]
  - Chest discomfort [Unknown]
  - Erythema [Unknown]
  - Chest pain [Unknown]
